FAERS Safety Report 15129294 (Version 1)
Quarter: 2018Q3

REPORT INFORMATION
  Report Type: Spontaneous
  Country: US (occurrence: US)
  Receive Date: 20180711
  Receipt Date: 20180711
  Transmission Date: 20181010
  Serious: No
  Sender: FDA-Public Use
  Company Number: US-GLAXOSMITHKLINE-US2018GSK120707

PATIENT
  Age: 56 Year

DRUGS (1)
  1. NUCALA [Suspect]
     Active Substance: MEPOLIZUMAB
     Dosage: UNK

REACTIONS (3)
  - Urticaria [Unknown]
  - Dysphonia [Unknown]
  - Contusion [Unknown]

NARRATIVE: CASE EVENT DATE: 201806
